FAERS Safety Report 7335498-2 (Version None)
Quarter: 2011Q1

REPORT INFORMATION
  Report Type: 
  Country: None (occurrence: None)
  Receive Date: 20110307
  Receipt Date: 20110225
  Transmission Date: 20110831
  Serious: Yes (Hospitalization)
  Sender: FDA-Public Use
  Company Number: NL-MEDIMMUNE-MEDI-0011656

PATIENT
  Sex: Male
  Weight: 4.17 kg

DRUGS (4)
  1. AMIODARONE [Concomitant]
  2. SYNAGIS [Suspect]
     Route: 051
     Dates: start: 20101013, end: 20101013
  3. SYNAGIS [Suspect]
     Route: 051
     Dates: start: 20100913, end: 20100913
  4. PROPANOLOL BEVERAGE [Concomitant]

REACTIONS (7)
  - RESTLESSNESS [None]
  - RHINORRHOEA [None]
  - SENSE OF OPPRESSION [None]
  - RHINOVIRUS INFECTION [None]
  - PYREXIA [None]
  - VIRAL INFECTION [None]
  - CRYING [None]
